FAERS Safety Report 5641985-5 (Version None)
Quarter: 2008Q1

REPORT INFORMATION
  Report Type: 
  Country: None (occurrence: None)
  Receive Date: 20080227
  Receipt Date: 20080215
  Transmission Date: 20080703
  Serious: Yes (Other)
  Sender: FDA-Public Use
  Company Number: PT-PFIZER INC-2008008593

PATIENT
  Sex: Female
  Weight: 64 kg

DRUGS (5)
  1. CHANTIX [Suspect]
     Indication: SMOKING CESSATION THERAPY
     Route: 048
  2. DIPLEXIL [Concomitant]
     Route: 048
  3. TOPAMAX [Concomitant]
     Route: 048
  4. LORAZEPAM [Concomitant]
     Route: 048
  5. HALAZEPAM [Concomitant]

REACTIONS (2)
  - BIPOLAR DISORDER [None]
  - DEPRESSION [None]
